FAERS Safety Report 25554975 (Version 1)
Quarter: 2025Q3

REPORT INFORMATION
  Report Type: Spontaneous
  Country: US (occurrence: US)
  Receive Date: 20250715
  Receipt Date: 20250715
  Transmission Date: 20251020
  Serious: No
  Sender: ELI LILLY AND COMPANY
  Company Number: US-ELI_LILLY_AND_COMPANY-US202507011544

PATIENT
  Age: 69 Year

DRUGS (12)
  1. ZEPBOUND [Suspect]
     Active Substance: TIRZEPATIDE
     Indication: Weight control
     Route: 058
     Dates: start: 20250124
  2. ZEPBOUND [Suspect]
     Active Substance: TIRZEPATIDE
     Indication: Weight control
     Route: 058
     Dates: start: 20250124
  3. ZEPBOUND [Suspect]
     Active Substance: TIRZEPATIDE
     Indication: Weight control
     Route: 058
     Dates: start: 20250124
  4. ZEPBOUND [Suspect]
     Active Substance: TIRZEPATIDE
     Indication: Weight control
     Route: 058
     Dates: start: 20250124
  5. ZEPBOUND [Suspect]
     Active Substance: TIRZEPATIDE
     Indication: Hypertension
     Route: 058
  6. ZEPBOUND [Suspect]
     Active Substance: TIRZEPATIDE
     Indication: Hypertension
     Route: 058
  7. ZEPBOUND [Suspect]
     Active Substance: TIRZEPATIDE
     Indication: Hypertension
     Route: 058
  8. ZEPBOUND [Suspect]
     Active Substance: TIRZEPATIDE
     Indication: Hypertension
     Route: 058
  9. ZEPBOUND [Suspect]
     Active Substance: TIRZEPATIDE
     Indication: Arthritis
  10. ZEPBOUND [Suspect]
     Active Substance: TIRZEPATIDE
     Indication: Arthritis
  11. ZEPBOUND [Suspect]
     Active Substance: TIRZEPATIDE
     Indication: Arthritis
  12. ZEPBOUND [Suspect]
     Active Substance: TIRZEPATIDE
     Indication: Arthritis

REACTIONS (1)
  - Injection site bruising [Unknown]
